FAERS Safety Report 19648990 (Version 3)
Quarter: 2021Q3

REPORT INFORMATION
  Report Type: Other
  Country: DE (occurrence: DE)
  Receive Date: 20210802
  Receipt Date: 20210907
  Transmission Date: 20211014
  Serious: Yes (Other)
  Sender: FDA-Public Use
  Company Number: DE-ROCHE-2745146

PATIENT
  Age: 57 Year
  Sex: Female
  Weight: 59 kg

DRUGS (17)
  1. HISTAKUT [Concomitant]
     Active Substance: DIMETHINDENE MALEATE
     Route: 042
     Dates: start: 20201118, end: 20210104
  2. CALCIMAGON D3 [Concomitant]
     Active Substance: CALCIUM\CHOLECALCIFEROL
     Dosage: CALCIUM 500 MG / VITAMIN D 400 IU DAILY
     Route: 048
     Dates: start: 20201118
  3. CALCIMAGON D3 [Concomitant]
     Active Substance: CALCIUM\CHOLECALCIFEROL
     Route: 048
     Dates: start: 20201118
  4. BISOPROLOL [Concomitant]
     Active Substance: BISOPROLOL
     Route: 048
     Dates: start: 20210709
  5. BEPANTHEN AUGEN? UND NASENSALBE [Concomitant]
     Route: 061
     Dates: start: 20210622
  6. TRASTUZUMAB. [Suspect]
     Active Substance: TRASTUZUMAB
     Dosage: DATE OF MOST RECENT DOSE PRIOR TO AE 20/JUL/2021: 326 MG
     Route: 041
     Dates: start: 20210518
  7. DEXAMETHASONE. [Concomitant]
     Active Substance: DEXAMETHASONE
     Route: 048
     Dates: start: 20201117, end: 20210106
  8. GYNOMUNAL VAGINALGEL [Concomitant]
     Route: 061
     Dates: start: 20210208, end: 20210222
  9. NOVALGIN (METAMIZOLE SODIUM) [Concomitant]
     Active Substance: METAMIZOLE SODIUM
     Route: 048
     Dates: start: 20210104, end: 20210109
  10. TRASTUZUMAB. [Suspect]
     Active Substance: TRASTUZUMAB
     Indication: BREAST CANCER
     Dosage: DATE OF LAST DOSE (336 MG) APPLICATION PRIOR EVENT: 10/DEC/2020?DATE OF LAST DOSE (336 MG) APPLICATI
     Route: 041
     Dates: start: 20201210, end: 20210328
  11. DEXAMETHASONE. [Concomitant]
     Active Substance: DEXAMETHASONE
     Route: 042
     Dates: start: 20201118, end: 20210104
  12. PERTUZUMAB. [Suspect]
     Active Substance: PERTUZUMAB
     Indication: BREAST CANCER
     Dosage: DATE OF DOSE (420 MG) LAST APPLICATION PRIOR EVENT: 10/DEC/2020?DATE OF DOSE (420 MG) LAST APPLICATI
     Route: 065
     Dates: start: 20201210, end: 20210328
  13. ZOLEDRONIC ACID [Suspect]
     Active Substance: ZOLEDRONIC ACID
     Indication: METASTASES TO BONE
     Dosage: 2ND DOSE ON 16/DEC/2020 AND 3RD DOSE ON 13/JAN/2021.?DATE OF LAST DOSE (4 MG) APPLICATION PRIOR EVEN
     Route: 065
     Dates: start: 20201118
  14. OMEPRAZOLE. [Concomitant]
     Active Substance: OMEPRAZOLE
     Route: 048
     Dates: start: 20210104, end: 20210109
  15. PERTUZUMAB. [Suspect]
     Active Substance: PERTUZUMAB
     Dosage: DATE OF MOST RECENT DOSE PRIOR TO AE 20/JUL/2021: 420 MG
     Route: 065
     Dates: start: 20210518
  16. DOCETAXEL. [Suspect]
     Active Substance: DOCETAXEL
     Indication: BREAST CANCER
     Dosage: DATE OF LAST DOSE (118 MG) APPLICATION PRIOR EVENT 10/DEC/2020?DATE OF LAST DOSE (118 MG) APPLICATIO
     Route: 065
     Dates: start: 20201118, end: 20210104
  17. ELIQUIS [Concomitant]
     Active Substance: APIXABAN
     Route: 048

REACTIONS (9)
  - Atrial fibrillation [Recovered/Resolved]
  - Abdominal pain upper [Recovered/Resolved]
  - Osteochondrosis [Not Recovered/Not Resolved]
  - Dry skin [Not Recovered/Not Resolved]
  - Dysgeusia [Recovered/Resolved]
  - Left ventricular dysfunction [Not Recovered/Not Resolved]
  - Anaemia [Recovered/Resolved]
  - Vulvovaginal dryness [Recovered/Resolved]
  - Back pain [Not Recovered/Not Resolved]

NARRATIVE: CASE EVENT DATE: 20201217
